FAERS Safety Report 11288812 (Version 1)
Quarter: 2015Q3

REPORT INFORMATION
  Report Type: Spontaneous
  Country: US (occurrence: US)
  Receive Date: 20150721
  Receipt Date: 20150721
  Transmission Date: 20151125
  Serious: Yes (Life-Threatening, Hospitalization, Other)
  Sender: FDA-Public Use
  Company Number: US-EPIC PHARMA LLC-2015EPC00008

PATIENT
  Age: 22 Year
  Sex: Male

DRUGS (1)
  1. SULINDAC. [Suspect]
     Active Substance: SULINDAC
     Dosage: 15000 MG, UNK

REACTIONS (18)
  - Hyperbilirubinaemia [Recovered/Resolved]
  - Agitation [None]
  - Oesophageal ulcer haemorrhage [Recovered/Resolved]
  - Suicide attempt [Recovered/Resolved]
  - Blood alkaline phosphatase increased [None]
  - Hypoaesthesia [None]
  - Paraesthesia [None]
  - Vomiting [None]
  - Heart rate increased [None]
  - Dysphonia [None]
  - Blood glucose increased [None]
  - Anuria [None]
  - Acute kidney injury [Recovered/Resolved]
  - Leukocytosis [None]
  - Intentional overdose [Recovered/Resolved]
  - Duodenal ulcer [Recovered/Resolved]
  - Dry gangrene [Recovering/Resolving]
  - Pain in extremity [None]
